FAERS Safety Report 6848319-9 (Version None)
Quarter: 2010Q3

REPORT INFORMATION
  Report Type: 
  Country: None (occurrence: None)
  Receive Date: 20100716
  Receipt Date: 20100706
  Transmission Date: 20110219
  Serious: Yes (Hospitalization)
  Sender: FDA-Public Use
  Company Number: US-ROCHE-713507

PATIENT
  Sex: Female
  Weight: 89 kg

DRUGS (8)
  1. TRASTUZUMAB [Suspect]
     Dosage: FORM: VIAL, LAST DOSE PRIOR TO SAE: 24 JUNE 2010, TOTAL DOSE: 558 MG.
     Route: 042
     Dates: start: 20091201
  2. DOCETAXEL [Suspect]
     Dosage: FORM: VIALS, TOTAL DOSE: 119 MG. LAST DOSE PRIOR TO SAE: 11 MAR 2010.
     Route: 042
     Dates: start: 20091201
  3. CLONAZEPAM [Concomitant]
     Dates: start: 20060101
  4. HYZAAR [Concomitant]
     Dosage: 100/25 MG
     Dates: start: 20040101
  5. INSULIN [Concomitant]
     Dosage: TDD: 40 UNITS
     Dates: start: 20030101
  6. LYRICA [Concomitant]
     Dates: start: 20040101
  7. NEXIUM [Concomitant]
     Dates: start: 19990101
  8. MAGNESIUM [Concomitant]
     Dosage: TTD: 48 MEQ
     Dates: start: 20100629, end: 20100629

REACTIONS (5)
  - CEREBROVASCULAR DISORDER [None]
  - DIPLOPIA [None]
  - GAIT DISTURBANCE [None]
  - HYPERTENSION [None]
  - PRESYNCOPE [None]
